FAERS Safety Report 4436703-2 (Version None)
Quarter: 2004Q3

REPORT INFORMATION
  Report Type: 
  Country: None (occurrence: None)
  Receive Date: 20040827
  Receipt Date: 20040827
  Transmission Date: 20050211
  Serious: Yes (Hospitalization)
  Sender: FDA-Public Use
  Company Number: None

PATIENT
  Age: 58 Year
  Sex: Male
  Weight: 71.4 kg

DRUGS (1)
  1. PHENYTOIN [Suspect]
     Indication: CONVULSION
     Dosage: 150 MG .6 ML TID ORAL
     Route: 048
     Dates: start: 20040501

REACTIONS (6)
  - DISORIENTATION [None]
  - DRUG LEVEL ABOVE THERAPEUTIC [None]
  - EXCORIATION [None]
  - FALL [None]
  - HEAD INJURY [None]
  - LACERATION [None]
